FAERS Safety Report 25659466 (Version 1)
Quarter: 2025Q3

REPORT INFORMATION
  Report Type: Spontaneous
  Country: EU (occurrence: EU)
  Receive Date: 20250808
  Receipt Date: 20250808
  Transmission Date: 20251020
  Serious: Yes (Other)
  Sender: IDORSIA PHARMACEUTICALS
  Company Number: None

PATIENT
  Age: 63 Year
  Sex: Female
  Weight: 53 kg

DRUGS (2)
  1. QUVIVIQ [Suspect]
     Active Substance: DARIDOREXANT
     Indication: Initial insomnia
     Dosage: 50 MG, QD
     Route: 048
     Dates: start: 20250717, end: 20250718
  2. QUVIVIQ [Suspect]
     Active Substance: DARIDOREXANT
     Indication: Middle insomnia

REACTIONS (5)
  - Quadriparesis [Recovered/Resolved]
  - Hallucination [Recovered/Resolved]
  - Chills [Recovered/Resolved]
  - Hyperhidrosis [Recovered/Resolved]
  - Language disorder [Recovered/Resolved]

NARRATIVE: CASE EVENT DATE: 20250717
